FAERS Safety Report 18360980 (Version 2)
Quarter: 2021Q1

REPORT INFORMATION
  Report Type: Spontaneous
  Country: CA (occurrence: CA)
  Receive Date: 20201008
  Receipt Date: 20210107
  Transmission Date: 20210419
  Serious: Yes (Hospitalization)
  Sender: FDA-Public Use
  Company Number: CA-PFIZER INC-2017106230

PATIENT
  Age: 48 Year
  Sex: Female

DRUGS (5)
  1. XELJANZ [Suspect]
     Active Substance: TOFACITINIB CITRATE
     Dosage: 5 MG, TWICE A DAY
     Route: 048
     Dates: start: 201803, end: 2018
  2. XELJANZ [Suspect]
     Active Substance: TOFACITINIB CITRATE
     Indication: RHEUMATOID ARTHRITIS
     Dosage: 5 MG, TWICE A DAY
     Route: 048
     Dates: start: 20170228, end: 20180227
  3. XELJANZ [Suspect]
     Active Substance: TOFACITINIB CITRATE
     Dosage: 5 MG, TWICE A DAY
     Route: 048
     Dates: start: 2018
  4. ARAVA [Concomitant]
     Active Substance: LEFLUNOMIDE
     Indication: RHEUMATOID ARTHRITIS
     Dosage: 10 MG, DAILY, X20 YEARS
     Route: 048
  5. PREDNISONE. [Concomitant]
     Active Substance: PREDNISONE
     Dosage: 7 MG, DAILY  (X25 YEARS)
     Route: 065

REACTIONS (21)
  - Asthenia [Unknown]
  - Rash [Unknown]
  - Bone pain [Not Recovered/Not Resolved]
  - Gout [Unknown]
  - Diarrhoea [Not Recovered/Not Resolved]
  - Adrenal disorder [Unknown]
  - Clostridium difficile infection [Unknown]
  - Abdominal distension [Not Recovered/Not Resolved]
  - Infection [Unknown]
  - Joint injury [Unknown]
  - Fatigue [Not Recovered/Not Resolved]
  - Abdominal discomfort [Not Recovered/Not Resolved]
  - Herpes zoster [Not Recovered/Not Resolved]
  - Skin disorder [Unknown]
  - White blood cell count decreased [Unknown]
  - Therapeutic product effect incomplete [Unknown]
  - Gastrointestinal infection [Unknown]
  - Disease recurrence [Unknown]
  - Weight increased [Unknown]
  - Nasopharyngitis [Unknown]
  - Irritable bowel syndrome [Not Recovered/Not Resolved]

NARRATIVE: CASE EVENT DATE: 2017
